FAERS Safety Report 19705914 (Version 1)
Quarter: 2021Q3

REPORT INFORMATION
  Report Type: Spontaneous
  Country: US (occurrence: US)
  Receive Date: 20210817
  Receipt Date: 20210817
  Transmission Date: 20211014
  Serious: No
  Sender: FDA-Public Use
  Company Number: US-THERATECHNOLOGIES INC.-2020-THE-TES-000336

PATIENT
  Sex: Male

DRUGS (23)
  1. DIPHENOXYLATE/ATROPINE [Concomitant]
     Active Substance: ATROPINE\DIPHENOXYLATE
  2. FINASTERIDE. [Concomitant]
     Active Substance: FINASTERIDE
  3. EGRIFTA SV [Suspect]
     Active Substance: TESAMORELIN ACETATE
     Indication: LIPODYSTROPHY ACQUIRED
     Dosage: 1.4 MG, QD
     Route: 058
     Dates: start: 20160129
  4. CLOPIDOGREL [Concomitant]
     Active Substance: CLOPIDOGREL BISULFATE
  5. CREON [Concomitant]
     Active Substance: PANCRELIPASE AMYLASE\PANCRELIPASE LIPASE\PANCRELIPASE PROTEASE
  6. EGRIFTA SV [Suspect]
     Active Substance: TESAMORELIN ACETATE
     Dosage: 1.4 MG, QD
     Route: 058
  7. NORVASC [Concomitant]
     Active Substance: AMLODIPINE BESYLATE
  8. FENOFIBRATE. [Concomitant]
     Active Substance: FENOFIBRATE
  9. METFORMIN [Concomitant]
     Active Substance: METFORMIN HYDROCHLORIDE
  10. TELMISARTAN. [Concomitant]
     Active Substance: TELMISARTAN
  11. PLAVIX [Concomitant]
     Active Substance: CLOPIDOGREL BISULFATE
  12. EDARBI [Concomitant]
     Active Substance: AZILSARTAN KAMEDOXOMIL
  13. HYDROCHLOROTHIAZIDE. [Concomitant]
     Active Substance: HYDROCHLOROTHIAZIDE
  14. PERCOCET                           /00446701/ [Concomitant]
     Active Substance: ACETAMINOPHEN\OXYCODONE HYDROCHLORIDE\OXYCODONE TEREPHTHALATE
  15. ACYCLOVIR                          /00587301/ [Concomitant]
     Active Substance: ACYCLOVIR
  16. MOVIPREP [Concomitant]
     Active Substance: ASCORBIC ACID\POLYETHYLENE GLYCOL 3350\POTASSIUM CHLORIDE\SODIUM ASCORBATE\SODIUM CHLORIDE\SODIUM SULFATE
  17. ISENTRESS [Concomitant]
     Active Substance: RALTEGRAVIR POTASSIUM
  18. RANITIDINE. [Concomitant]
     Active Substance: RANITIDINE
  19. OXYCONTIN [Concomitant]
     Active Substance: OXYCODONE HYDROCHLORIDE
  20. CRESTOR [Concomitant]
     Active Substance: ROSUVASTATIN CALCIUM
  21. BUPROPION. [Concomitant]
     Active Substance: BUPROPION
  22. CLONAZEPAM. [Concomitant]
     Active Substance: CLONAZEPAM
  23. REYATAZ [Concomitant]
     Active Substance: ATAZANAVIR SULFATE

REACTIONS (1)
  - Product dose omission issue [Recovered/Resolved]
